FAERS Safety Report 5374210-3 (Version None)
Quarter: 2007Q2

REPORT INFORMATION
  Report Type: 
  Country: None (occurrence: None)
  Receive Date: 20070627
  Receipt Date: 20060703
  Transmission Date: 20071010
  Serious: Yes (Death)
  Sender: FDA-Public Use
  Company Number: 454349

PATIENT
  Age: 67 Year
  Sex: Male
  Weight: 64.9 kg

DRUGS (4)
  1. XELODA [Suspect]
     Indication: RECTAL CANCER METASTATIC
     Dosage: 1500 MG 2 PER DAY ORAL
     Route: 048
     Dates: start: 20051020
  2. AVASTIN [Concomitant]
  3. OXALIPLATIN [Concomitant]
  4. ATENOLOL [Concomitant]

REACTIONS (3)
  - DEATH [None]
  - DEHYDRATION [None]
  - RECTAL CANCER METASTATIC [None]
